FAERS Safety Report 16674568 (Version 2)
Quarter: 2019Q3

REPORT INFORMATION
  Report Type: Spontaneous
  Country: US (occurrence: US)
  Receive Date: 20190806
  Receipt Date: 20190903
  Transmission Date: 20191004
  Serious: No
  Sender: FDA-Public Use
  Company Number: US-009507513-1907USA013189

PATIENT
  Age: 78 Year
  Sex: Male
  Weight: 97 kg

DRUGS (12)
  1. XTANDI [Suspect]
     Active Substance: ENZALUTAMIDE
     Indication: PROSTATE CANCER METASTATIC
     Dosage: 160 MILLIGRAM, ONCE DAILY
     Route: 048
     Dates: start: 20170527
  2. ASPIRIN. [Concomitant]
     Active Substance: ASPIRIN
     Dosage: UNK
  3. SIMVASTATIN. [Concomitant]
     Active Substance: SIMVASTATIN
     Dosage: 20 MILLIGRAM
  4. IBUPROFEN. [Concomitant]
     Active Substance: IBUPROFEN
  5. OMEPRAZOLE. [Concomitant]
     Active Substance: OMEPRAZOLE
     Dosage: UNK
  6. PROVENGE [Concomitant]
     Active Substance: SIPULEUCEL-T
     Dosage: UNK
     Dates: start: 20170717
  7. THERAPY UNSPECIFIED [Suspect]
     Active Substance: UNSPECIFIED INGREDIENT
     Dosage: UNK
  8. MONTELUKAST SODIUM. [Concomitant]
     Active Substance: MONTELUKAST SODIUM
     Dosage: UNK
  9. LEVOTHYROXINE SODIUM. [Concomitant]
     Active Substance: LEVOTHYROXINE SODIUM
     Dosage: UNK
  10. LEVODOPA [Suspect]
     Active Substance: LEVODOPA
     Indication: PRODUCT USED FOR UNKNOWN INDICATION
     Dosage: UNK
     Dates: end: 20190524
  11. CALCIUM (UNSPECIFIED) [Concomitant]
     Active Substance: CALCIUM
  12. METFORMIN HYDROCHLORIDE. [Concomitant]
     Active Substance: METFORMIN HYDROCHLORIDE

REACTIONS (8)
  - Constipation [Unknown]
  - Balance disorder [Not Recovered/Not Resolved]
  - Asthenia [Not Recovered/Not Resolved]
  - Gait disturbance [Not Recovered/Not Resolved]
  - Dizziness [Not Recovered/Not Resolved]
  - Fatigue [Unknown]
  - Nausea [Recovered/Resolved]
  - Hot flush [Unknown]

NARRATIVE: CASE EVENT DATE: 20180112
